FAERS Safety Report 8733516 (Version 3)
Quarter: 2012Q4

REPORT INFORMATION
  Report Type: 
  Country: GB (occurrence: GB)
  Receive Date: 20120821
  Receipt Date: 20121003
  Transmission Date: 20130627
  Serious: Yes (Other)
  Sender: FDA-Public Use
  Company Number: GB-MYLANLABS-2012S1016219

PATIENT
  Age: 79 Year
  Sex: Male
  Weight: 63.05 kg

DRUGS (7)
  1. BACLOFEN [Suspect]
     Indication: MUSCLE SPASMS
     Route: 048
     Dates: start: 20120731
  2. BACLOFEN [Suspect]
     Indication: MUSCLE SPASTICITY
     Route: 048
     Dates: start: 20120731
  3. BACLOFEN [Suspect]
     Indication: MULTIPLE SCLEROSIS
     Route: 048
     Dates: start: 20120731
  4. BACLOFEN [Suspect]
     Indication: MUSCLE SPASMS
     Route: 048
     Dates: start: 20120821, end: 20120828
  5. BACLOFEN [Suspect]
     Indication: MUSCLE SPASTICITY
     Route: 048
     Dates: start: 20120821, end: 20120828
  6. BACLOFEN [Suspect]
     Indication: MULTIPLE SCLEROSIS
     Route: 048
     Dates: start: 20120821, end: 20120828
  7. FINASTERIDE [Concomitant]
     Indication: PROSTATE CANCER
     Route: 048
     Dates: start: 20030512

REACTIONS (5)
  - Dizziness [Not Recovered/Not Resolved]
  - Somnolence [Not Recovered/Not Resolved]
  - Posture abnormal [Not Recovered/Not Resolved]
  - Palpitations [Not Recovered/Not Resolved]
  - Dizziness [Recovered/Resolved]
